FAERS Safety Report 8035763-X (Version None)
Quarter: 2011Q4

REPORT INFORMATION
  Report Type: 
  Country: None (occurrence: None)
  Receive Date: 20111227
  Receipt Date: 20111213
  Transmission Date: 20120403
  Serious: Yes (Hospitalization)
  Sender: FDA-Public Use
  Company Number: 2011SP059176

PATIENT
  Age: 59 Year
  Sex: Female

DRUGS (6)
  1. BOCEPREVIR (SCH-503034) [Suspect]
     Indication: PRODUCT USED FOR UNKNOWN INDICATION
  2. LASIX [Concomitant]
  3. AMLODIPINE [Suspect]
     Indication: HYPERTENSION
     Dosage: 5 MAG, PO
     Route: 048
     Dates: start: 20111102, end: 20111118
  4. AMARYL [Concomitant]
  5. ASPIRIN [Concomitant]
  6. SPIRONOLACTONE [Concomitant]

REACTIONS (4)
  - DYSPNOEA [None]
  - OEDEMA PERIPHERAL [None]
  - COUGH [None]
  - DRUG INTERACTION [None]
